FAERS Safety Report 4655950-8 (Version None)
Quarter: 2005Q2

REPORT INFORMATION
  Report Type: 
  Country: None (occurrence: None)
  Receive Date: 20050506
  Receipt Date: 20050506
  Transmission Date: 20051028
  Serious: Yes (Other)
  Sender: FDA-Public Use
  Company Number: None

PATIENT
  Sex: Male
  Weight: 68.6 kg

DRUGS (4)
  1. KETOCONAZOLE [Suspect]
     Dosage: PO 400 MG Q 8 HOURS X 7 DAYS EVERY OTHER WEEK FOR 6 WEEKS
     Route: 048
     Dates: start: 20050323, end: 20050412
  2. ESTRAMUSTINE [Suspect]
     Dosage: PO 140 MG Q 8 HOURS X 7 DAYS EVERY OTHER WEEK FOR 6 WEEKS
     Route: 048
     Dates: start: 20050330, end: 20050419
  3. ADRIAMYCIN PFS [Suspect]
     Dosage: 20 MG/M2 DAY 1 DAY 15 DAYY 29
  4. VEBAN [Suspect]
     Dosage: 4 MG/M2 DAY 8 DAY 22 DAY 36

REACTIONS (7)
  - HYDRONEPHROSIS [None]
  - JAW DISORDER [None]
  - LOCAL SWELLING [None]
  - LYMPHADENOPATHY [None]
  - MALIGNANT NEOPLASM PROGRESSION [None]
  - RENAL FAILURE ACUTE [None]
  - SPINAL DISORDER [None]
